FAERS Safety Report 25006571 (Version 1)
Quarter: 2025Q1

REPORT INFORMATION
  Report Type: Spontaneous
  Country: AE (occurrence: AE)
  Receive Date: 20250225
  Receipt Date: 20250225
  Transmission Date: 20250408
  Serious: Yes (Other)
  Sender: Haleon PLC
  Company Number: AE-HALEON-2229491

PATIENT

DRUGS (1)
  1. ACETAMINOPHEN\ASPIRIN\CAFFEINE [Suspect]
     Active Substance: ACETAMINOPHEN\ASPIRIN\CAFFEINE
     Indication: Product used for unknown indication

REACTIONS (1)
  - Blindness transient [Recovered/Resolved]
